FAERS Safety Report 22632569 (Version 1)
Quarter: 2023Q2

REPORT INFORMATION
  Report Type: Spontaneous
  Country: CA (occurrence: CA)
  Receive Date: 20230623
  Receipt Date: 20230623
  Transmission Date: 20230721
  Serious: Yes (Other)
  Sender: FDA-Public Use
  Company Number: CA-AUROBINDO-AUR-APL-2023-042627

PATIENT
  Age: 66 Year
  Sex: Female

DRUGS (3)
  1. TERBINAFINE HYDROCHLORIDE [Suspect]
     Active Substance: TERBINAFINE HYDROCHLORIDE
     Indication: Onychomycosis
     Dosage: 250 MILLIGRAM, TWO TIMES A DAY
     Route: 048
  2. HYDROCHLOROTHIAZIDE [Concomitant]
     Active Substance: HYDROCHLOROTHIAZIDE
     Indication: Product used for unknown indication
     Dosage: UNK
     Route: 065
  3. ROSUVASTATIN [Concomitant]
     Active Substance: ROSUVASTATIN
     Indication: Product used for unknown indication
     Dosage: UNK
     Route: 065

REACTIONS (8)
  - Weight decreased [Recovered/Resolved]
  - Candida infection [Recovered/Resolved]
  - Decreased appetite [Recovered/Resolved]
  - Dysgeusia [Recovered/Resolved]
  - Hypokalaemia [Recovered/Resolved]
  - Malaise [Recovered/Resolved]
  - Nausea [Recovered/Resolved]
  - Renal impairment [Recovered/Resolved]
